APPROVED DRUG PRODUCT: CEPHAPIRIN SODIUM
Active Ingredient: CEPHAPIRIN SODIUM
Strength: EQ 20GM BASE/VIAL
Dosage Form/Route: INJECTABLE;INJECTION
Application: A062720 | Product #004
Applicant: HIKMA PHARMACEUTICALS USA INC
Approved: Jul 2, 1987 | RLD: No | RS: No | Type: DISCN